FAERS Safety Report 8630604 (Version 4)
Quarter: 2014Q1

REPORT INFORMATION
  Report Type: Spontaneous
  Country: US (occurrence: US)
  Receive Date: 20120622
  Receipt Date: 20140108
  Transmission Date: 20141002
  Serious: Yes (Disabling)
  Sender: FDA-Public Use
  Company Number: US-ASTRAZENECA-2012SE34508

PATIENT
  Age: 53 Year
  Sex: Male

DRUGS (23)
  1. NEXIUM [Suspect]
     Indication: DYSPEPSIA
     Dosage: DAILY
     Route: 048
     Dates: start: 1990, end: 2010
  2. NEXIUM [Suspect]
     Indication: DYSPEPSIA
     Route: 048
     Dates: start: 20081121
  3. NEXIUM [Suspect]
     Indication: DYSPEPSIA
     Route: 048
  4. PRILOSEC [Suspect]
     Route: 048
     Dates: start: 20080818
  5. PRILOSEC [Suspect]
     Route: 048
     Dates: start: 2010
  6. PRILOSEC [Suspect]
     Route: 048
     Dates: start: 20110830
  7. TUMS [Concomitant]
  8. ROLAIDS [Concomitant]
  9. TRILIPIX [Concomitant]
  10. TIZANIDINE [Concomitant]
  11. DICLOFENAC [Concomitant]
  12. GABAPENTIN/NEURONTIN [Concomitant]
     Route: 048
     Dates: start: 20110830
  13. LISINOPRIL [Concomitant]
     Route: 048
  14. PAROXETINE HCL [Concomitant]
     Route: 048
  15. ALPRAZOLAM/XANAX [Concomitant]
     Dates: start: 20110830
  16. PRAVASTATIN [Concomitant]
  17. TRAZODONE HCL [Concomitant]
  18. LORATAB [Concomitant]
     Dates: start: 20110830
  19. FLEXERIL [Concomitant]
     Dates: start: 20110830
  20. RELAFEN [Concomitant]
     Dates: start: 20110830
  21. AMBIEN [Concomitant]
     Dates: start: 20110830
  22. PROMETHAZINE W/CODEI [Concomitant]
     Dates: start: 20080130
  23. AMPICILLIN [Concomitant]
     Dates: start: 20080130

REACTIONS (2)
  - Lumbar vertebral fracture [Unknown]
  - Osteoporosis [Unknown]
